FAERS Safety Report 15263557 (Version 1)
Quarter: 2018Q4

REPORT INFORMATION
  Report Type: Spontaneous
  Country: GB (occurrence: GB)
  Receive Date: 20180810
  Receipt Date: 20180810
  Transmission Date: 20190204
  Serious: Yes (Other)
  Sender: FDA-Public Use
  Company Number: GB-TEVA-2018-GB-937525

PATIENT
  Age: 3 Year
  Sex: Female

DRUGS (1)
  1. AMOXICILLIN - ORAL SOLUTION250MG/5ML [Suspect]
     Active Substance: AMOXICILLIN
     Indication: NASOPHARYNGITIS
     Dosage: 250MG/5ML
     Route: 048
     Dates: start: 20170516

REACTIONS (3)
  - Incorrect dose administered by device [Unknown]
  - Adverse drug reaction [Unknown]
  - Malaise [Unknown]
